FAERS Safety Report 18957794 (Version 1)
Quarter: 2021Q1

REPORT INFORMATION
  Report Type: Report from Study
  Country: RU (occurrence: RU)
  Receive Date: 20210302
  Receipt Date: 20210302
  Transmission Date: 20210420
  Serious: Yes (Hospitalization)
  Sender: FDA-Public Use
  Company Number: RU-CELGENEUS-RUS-20210104966

PATIENT
  Age: 60 Year
  Sex: Female
  Weight: 90.3 kg

DRUGS (30)
  1. ISOFAN?INSULIN HM [Concomitant]
     Dosage: 16 MILLIEQUIVALENTS
     Route: 058
     Dates: start: 20210203
  2. NOVORAPID [Concomitant]
     Active Substance: INSULIN ASPART
     Dosage: 8 MILLIEQUIVALENTS
     Route: 058
     Dates: start: 20210115, end: 20210126
  3. FAVIPIRAVIR [Concomitant]
     Active Substance: FAVIPIRAVIR
     Indication: PNEUMONIA
     Dosage: 200 MILLIGRAM
     Route: 048
     Dates: start: 202101, end: 202101
  4. ISOFAN?INSULIN HM [Concomitant]
     Dosage: 24 MILLIEQUIVALENTS
     Route: 058
     Dates: start: 20210127, end: 20210202
  5. NOVORAPID [Concomitant]
     Active Substance: INSULIN ASPART
     Indication: DIABETES MELLITUS
     Dosage: 6 MILLIEQUIVALENTS
     Route: 058
     Dates: start: 20210114
  6. OZANIMOD. [Suspect]
     Active Substance: OZANIMOD
     Indication: COLITIS ULCERATIVE
     Route: 048
     Dates: start: 20191225, end: 20210120
  7. HYDROXYCHLOROQUINE [Concomitant]
     Active Substance: HYDROXYCHLOROQUINE
     Indication: PNEUMONIA
     Dosage: 400 MILLIGRAM
     Route: 048
     Dates: start: 20210114, end: 20210114
  8. AMLODIPINE [Concomitant]
     Active Substance: AMLODIPINE BESYLATE
     Indication: HYPERTENSION
     Dosage: 5 MILLIGRAM
     Route: 048
     Dates: start: 20210114
  9. MOXONIDINE [Concomitant]
     Active Substance: MOXONIDINE
     Indication: HYPERTENSION
     Dosage: .4 MILLIGRAM
     Route: 048
     Dates: start: 20210115
  10. PROTAPHANE [Concomitant]
     Active Substance: INSULIN HUMAN
     Indication: DIABETES MELLITUS
     Dosage: 14 MILLIEQUIVALENTS
     Route: 058
     Dates: start: 20210114, end: 202101
  11. ISOFAN?INSULIN HM [Concomitant]
     Indication: DIABETES MELLITUS
     Dosage: 14 MILLIEQUIVALENTS
     Route: 058
     Dates: start: 20210126
  12. METFORMIN [Concomitant]
     Active Substance: METFORMIN HYDROCHLORIDE
     Indication: DIABETES MELLITUS
     Dosage: 2000 MILLIGRAM
     Route: 048
     Dates: start: 2009
  13. SULFASALAZINE. [Concomitant]
     Active Substance: SULFASALAZINE
     Indication: COLITIS ULCERATIVE
     Dosage: 3 GRAM
     Route: 048
     Dates: start: 2009
  14. BISOPROLOL [Concomitant]
     Active Substance: BISOPROLOL
     Dosage: 10 MILLIGRAM
     Route: 048
     Dates: start: 20210115, end: 20210120
  15. OZANIMOD. [Suspect]
     Active Substance: OZANIMOD
     Route: 048
     Dates: start: 20210127
  16. BISOPROLOL [Concomitant]
     Active Substance: BISOPROLOL
     Dosage: 5 MILLIGRAM
     Route: 048
     Dates: start: 20210121
  17. MANINIL [Concomitant]
     Active Substance: GLYBURIDE
     Indication: DIABETES MELLITUS
     Dosage: 3 PILLS
     Route: 048
     Dates: start: 2009
  18. CATHEJELL WITH LIDOCAINE [Concomitant]
     Indication: COLONOSCOPY
     Dosage: 6 GRAM
     Route: 054
     Dates: start: 20201109, end: 20201109
  19. HYDROXYCHLOROQUINE [Concomitant]
     Active Substance: HYDROXYCHLOROQUINE
     Dosage: 200 MILLIGRAM
     Route: 048
     Dates: start: 20210115, end: 20210120
  20. DEXAMETHASONE. [Concomitant]
     Active Substance: DEXAMETHASONE
     Indication: PNEUMONIA
     Dosage: 20 MILLIGRAM
     Route: 041
     Dates: start: 202101, end: 202101
  21. BISOPROLOL [Concomitant]
     Active Substance: BISOPROLOL
     Indication: HYPERTENSION
     Dosage: 7.5 MILLIGRAM
     Route: 048
     Dates: start: 2010
  22. PROTAPHANE [Concomitant]
     Active Substance: INSULIN HUMAN
     Dosage: 22 MILLIEQUIVALENTS
     Route: 058
     Dates: start: 20210115, end: 20210126
  23. RINGERS SOLUTION [Concomitant]
     Active Substance: CALCIUM CHLORIDE\POTASSIUM CHLORIDE\SODIUM CHLORIDE
     Indication: PNEUMONIA
     Dosage: 200 MILLILITER
     Route: 041
     Dates: start: 202101, end: 202101
  24. LOSARTAN. [Concomitant]
     Active Substance: LOSARTAN
     Indication: HYPERTENSION
     Dosage: 25 MILLIGRAM
     Route: 048
     Dates: start: 20210115, end: 20210120
  25. LOSARTAN. [Concomitant]
     Active Substance: LOSARTAN
     Dosage: 100 MILLIGRAM
     Route: 048
     Dates: start: 20210121
  26. NOVORAPID [Concomitant]
     Active Substance: INSULIN ASPART
     Dosage: 12 MILLIEQUIVALENTS
     Route: 058
     Dates: start: 20210203
  27. FORTRANS [Concomitant]
     Active Substance: POLYETHYLENE GLYCOL 4000\POTASSIUM CHLORIDE\SODIUM BICARBONATE\SODIUM CHLORIDE\SODIUM SULFATE
     Indication: BOWEL PREPARATION
     Dosage: 256 GRAM
     Route: 048
     Dates: start: 20201108, end: 20201108
  28. HEPARIN [Concomitant]
     Active Substance: HEPARIN SODIUM
     Indication: PNEUMONIA
     Dosage: 10000 MILLIEQUIVALENTS
     Route: 060
     Dates: start: 202101, end: 202101
  29. ISOFAN?INSULIN HM [Concomitant]
     Dosage: 26 MILLIEQUIVALENTS
     Route: 058
     Dates: start: 20210203
  30. NOVORAPID [Concomitant]
     Active Substance: INSULIN ASPART
     Dosage: 8 MILLIEQUIVALENTS
     Route: 058
     Dates: start: 20210127, end: 20210202

REACTIONS (1)
  - COVID-19 pneumonia [Recovered/Resolved]

NARRATIVE: CASE EVENT DATE: 20210104
